FAERS Safety Report 18955126 (Version 1)
Quarter: 2021Q1

REPORT INFORMATION
  Report Type: Spontaneous
  Country: US (occurrence: US)
  Receive Date: 20210302
  Receipt Date: 20210302
  Transmission Date: 20210420
  Serious: No
  Sender: FDA-Public Use
  Company Number: NVSC2021US043158

PATIENT
  Sex: Male

DRUGS (1)
  1. PROMACTA [Suspect]
     Active Substance: ELTROMBOPAG OLAMINE
     Indication: IMMUNE THROMBOCYTOPENIA
     Dosage: 1 DF, QD
     Route: 065

REACTIONS (5)
  - Product dose omission issue [Unknown]
  - Platelet count decreased [Unknown]
  - Fatigue [Unknown]
  - Skin depigmentation [Unknown]
  - Adverse drug reaction [Unknown]
